FAERS Safety Report 24905003 (Version 1)
Quarter: 2025Q1

REPORT INFORMATION
  Report Type: Spontaneous
  Country: US (occurrence: US)
  Receive Date: 20250130
  Receipt Date: 20250130
  Transmission Date: 20250409
  Serious: Yes (Hospitalization, Other)
  Sender: PFIZER
  Company Number: US-PFIZER INC-202500018409

PATIENT
  Age: 59 Year
  Sex: Female

DRUGS (1)
  1. METHYLPREDNISOLONE [Suspect]
     Active Substance: METHYLPREDNISOLONE
     Indication: Addison^s disease

REACTIONS (2)
  - Malabsorption [Unknown]
  - Adrenocortical insufficiency acute [Unknown]
